FAERS Safety Report 17854314 (Version 5)
Quarter: 2021Q2

REPORT INFORMATION
  Report Type: Spontaneous
  Country: US (occurrence: US)
  Receive Date: 20200603
  Receipt Date: 20210423
  Transmission Date: 20210717
  Serious: Yes (Hospitalization, Disabling, Other)
  Sender: FDA-Public Use
  Company Number: NVSC2020US152932

PATIENT
  Age: 51 Year
  Sex: Female
  Weight: 65.8 kg

DRUGS (29)
  1. VENLAFAXINE [Concomitant]
     Active Substance: VENLAFAXINE HYDROCHLORIDE
     Indication: PRODUCT USED FOR UNKNOWN INDICATION
     Dosage: 2 DF, QD (WITH FOOD)
     Route: 065
  2. BACTROBAN [Concomitant]
     Active Substance: MUPIROCIN\MUPIROCIN CALCIUM
     Indication: PRODUCT USED FOR UNKNOWN INDICATION
     Dosage: UNK UNK, TID(APPLY IN AFFECTED AREA (22 G))
     Route: 061
     Dates: start: 20161208, end: 20170407
  3. PROZAC [Concomitant]
     Active Substance: FLUOXETINE HYDROCHLORIDE
     Indication: PRODUCT USED FOR UNKNOWN INDICATION
     Dosage: 1 DF
     Route: 048
  4. HYTONE [Concomitant]
     Active Substance: HYDROCORTISONE
     Indication: PRODUCT USED FOR UNKNOWN INDICATION
     Dosage: UNK UNK, BID (APPLY  IN AFFECTED AREA(20 G))
     Route: 061
     Dates: start: 20161009, end: 20170407
  5. PROZAC [Concomitant]
     Active Substance: FLUOXETINE HYDROCHLORIDE
     Dosage: 40 MG, QD
     Route: 048
  6. ELIDEL [Concomitant]
     Active Substance: PIMECROLIMUS
     Indication: PRODUCT USED FOR UNKNOWN INDICATION
     Dosage: UNK
     Route: 065
  7. BENADRYL [Concomitant]
     Active Substance: DIPHENHYDRAMINE HYDROCHLORIDE
     Indication: HYPERSENSITIVITY
     Dosage: 25 MG, Q6H
     Route: 065
  8. HYDROCORTISONE. [Concomitant]
     Active Substance: HYDROCORTISONE
     Indication: DERMATITIS
     Dosage: UNK UNK, BID
     Route: 065
  9. HYDROCORTISONE. [Concomitant]
     Active Substance: HYDROCORTISONE
     Dosage: 2.5 %, TID (APPLICATION ON AFFECTED AREA)
     Route: 065
  10. ACYCLOVIR. [Concomitant]
     Active Substance: ACYCLOVIR
     Indication: PRODUCT USED FOR UNKNOWN INDICATION
     Dosage: 1 DF (FOR 7HR)
     Route: 048
  11. CERA [Concomitant]
     Indication: PRODUCT USED FOR UNKNOWN INDICATION
     Dosage: UNK
     Route: 065
  12. TRIAMCINOLONE [Concomitant]
     Active Substance: TRIAMCINOLONE
     Indication: PRODUCT USED FOR UNKNOWN INDICATION
     Dosage: UNK UNK, BID (APPLY INAFFECTED AREA)
     Route: 065
     Dates: start: 20170407, end: 20170407
  13. TRIAMCINOLONE [Concomitant]
     Active Substance: TRIAMCINOLONE
     Dosage: UNK, TID (454 G APPLY INAFFECTED AREA))
     Route: 061
     Dates: start: 20171101
  14. METHYLPREDNISOLONE. [Concomitant]
     Active Substance: METHYLPREDNISOLONE
     Indication: PRODUCT USED FOR UNKNOWN INDICATION
     Dosage: 125 MG, QD
     Route: 042
     Dates: start: 20171121, end: 20171121
  15. ACETAMINOPHEN. [Concomitant]
     Active Substance: ACETAMINOPHEN
     Indication: PRODUCT USED FOR UNKNOWN INDICATION
     Dosage: 500 MG
     Route: 048
  16. RITALIN [Concomitant]
     Active Substance: METHYLPHENIDATE HYDROCHLORIDE
     Indication: PRODUCT USED FOR UNKNOWN INDICATION
     Dosage: 1 DF, BID
     Route: 065
  17. AMLODIPINE [Concomitant]
     Active Substance: AMLODIPINE BESYLATE
     Indication: PRODUCT USED FOR UNKNOWN INDICATION
     Dosage: 1 DF, QD
     Route: 048
  18. MUPIROCIN. [Concomitant]
     Active Substance: MUPIROCIN
     Indication: PRODUCT USED FOR UNKNOWN INDICATION
     Dosage: UNK UNK, TID (APPLY 1 APPLICATION ON AFFECTED AREA)
     Route: 061
     Dates: start: 20161208, end: 20170407
  19. CLONAZEPAM. [Concomitant]
     Active Substance: CLONAZEPAM
     Indication: PRODUCT USED FOR UNKNOWN INDICATION
     Dosage: 2 DF, QMO
     Route: 048
  20. ASPIRIN. [Concomitant]
     Active Substance: ASPIRIN
     Indication: PRODUCT USED FOR UNKNOWN INDICATION
     Dosage: UNK
     Route: 048
  21. RETINOL [Concomitant]
     Active Substance: RETINOL
     Indication: PRODUCT USED FOR UNKNOWN INDICATION
     Route: 065
  22. DIPHENHYDRAMINE HYDROCHLORIDE. [Concomitant]
     Active Substance: DIPHENHYDRAMINE HYDROCHLORIDE
     Indication: PRODUCT USED FOR UNKNOWN INDICATION
     Dosage: 1 DF, Q6H
     Route: 048
     Dates: start: 20171121
  23. ERGOCALCIFEROL. [Concomitant]
     Active Substance: ERGOCALCIFEROL
     Indication: PRODUCT USED FOR UNKNOWN INDICATION
     Dosage: 1 DF, QW (50000 UNITES)
     Route: 065
  24. MAXITROL [Suspect]
     Active Substance: DEXAMETHASONE\NEOMYCIN SULFATE\POLYMYXIN B SULFATE
     Indication: SWELLING FACE
     Dosage: UNK
     Route: 065
  25. TRIAMCINOLONE [Concomitant]
     Active Substance: TRIAMCINOLONE
     Dosage: UNK, TID (45 G APPLY INAFFECTED AREA)
     Route: 061
     Dates: start: 20170630
  26. TRIAMCINOLONE [Concomitant]
     Active Substance: TRIAMCINOLONE
     Dosage: UNK, TID(APPLY INAFFECTED AREA) 454 G)
     Route: 061
     Dates: start: 20171121
  27. FAMOTIDINE. [Concomitant]
     Active Substance: FAMOTIDINE
     Indication: PRODUCT USED FOR UNKNOWN INDICATION
     Dosage: 20 MG, QD
     Route: 042
     Dates: start: 20171121, end: 20171121
  28. TRIAMCINOLONE [Concomitant]
     Active Substance: TRIAMCINOLONE
     Dosage: UNK, BID (15 G APPLY INAFFECTED AREA)
     Route: 061
     Dates: start: 20171125
  29. GABAPENTIN. [Concomitant]
     Active Substance: GABAPENTIN
     Indication: SPINAL STENOSIS
     Route: 048

REACTIONS (38)
  - Dyspnoea [Unknown]
  - Skin disorder [Unknown]
  - Nose deformity [Unknown]
  - Hypertension [Unknown]
  - Neurodermatitis [Unknown]
  - Alopecia [Unknown]
  - Dermatillomania [Unknown]
  - Dermatitis contact [Unknown]
  - Rash [Unknown]
  - Agitation [Unknown]
  - Head injury [Unknown]
  - Face injury [Unknown]
  - Urticaria [Unknown]
  - Choking sensation [Unknown]
  - Dry skin [Unknown]
  - Contusion [Unknown]
  - Scar [Unknown]
  - Migraine [Unknown]
  - Nasal discomfort [Unknown]
  - Haemorrhage [Unknown]
  - Craniofacial deformity [Unknown]
  - Erythema [Unknown]
  - Visual impairment [Unknown]
  - Wheezing [Unknown]
  - Dermatitis [Unknown]
  - Skin exfoliation [Unknown]
  - Nightmare [Unknown]
  - Anxiety [Unknown]
  - Skin abrasion [Unknown]
  - Vision blurred [Unknown]
  - Blindness transient [Unknown]
  - Ear pain [Unknown]
  - Pruritus [Unknown]
  - Facial pain [Unknown]
  - Headache [Unknown]
  - Road traffic accident [Unknown]
  - Drug hypersensitivity [Unknown]
  - Nasal injury [Unknown]

NARRATIVE: CASE EVENT DATE: 20160615
